FAERS Safety Report 21372526 (Version 1)
Quarter: 2022Q3

REPORT INFORMATION
  Report Type: Spontaneous
  Country: DE (occurrence: DE)
  Receive Date: 20220924
  Receipt Date: 20220924
  Transmission Date: 20221026
  Serious: Yes (Hospitalization)
  Sender: FDA-Public Use
  Company Number: DE-NOVARTISPH-NVSC2022DE211175

PATIENT
  Age: 84 Year
  Sex: Male
  Weight: 74 kg

DRUGS (5)
  1. DOCETAXEL [Suspect]
     Active Substance: DOCETAXEL
     Indication: Product used for unknown indication
     Dosage: UNK (SCHEMA)
     Route: 065
  2. SIMVASTATIN [Concomitant]
     Active Substance: SIMVASTATIN
     Indication: Product used for unknown indication
     Dosage: 40 MG, QD (0-0-1-0)
     Route: 065
  3. APIXABAN [Concomitant]
     Active Substance: APIXABAN
     Indication: Product used for unknown indication
     Dosage: 5 MG, BID (1-0-1-0)
     Route: 065
  4. BISOPROLOL [Concomitant]
     Active Substance: BISOPROLOL
     Indication: Product used for unknown indication
     Dosage: 5 MG, QD ( 1-0-0-0)
     Route: 065
  5. SPIRONOLACTONE [Concomitant]
     Active Substance: SPIRONOLACTONE
     Indication: Product used for unknown indication
     Dosage: 25 MG, (0.5-0-0-0)
     Route: 065

REACTIONS (9)
  - Condition aggravated [Unknown]
  - Anaemia [Unknown]
  - General physical health deterioration [Unknown]
  - Arrhythmia [Unknown]
  - Weight decreased [Unknown]
  - Oedema peripheral [Unknown]
  - Systemic infection [Unknown]
  - Dyspnoea [Unknown]
  - Nausea [Unknown]
